FAERS Safety Report 10077826 (Version 1)
Quarter: 2014Q2

REPORT INFORMATION
  Report Type: Spontaneous
  Country: IT (occurrence: IT)
  Receive Date: 20140414
  Receipt Date: 20140414
  Transmission Date: 20141212
  Serious: Yes (Hospitalization)
  Sender: FDA-Public Use
  Company Number: PHHY2014IT045458

PATIENT
  Age: 77 Year
  Sex: Female

DRUGS (5)
  1. TEGRETOL [Suspect]
     Dosage: ONE POSOLOGY UNIT TOTAL (400MG)
     Route: 048
     Dates: start: 20140210, end: 20140210
  2. TEGRETOL [Suspect]
     Dosage: 100 MG (TEGRETOL 200MG)
  3. LANSOPRAZOLE [Concomitant]
     Dosage: 20 MG, UNK
     Route: 048
  4. SOLDESAM [Concomitant]
     Dosage: 32 GTT, UNK
     Route: 048
  5. FENTANYL [Concomitant]
     Dosage: UNK UKN, UNK

REACTIONS (4)
  - Sopor [Recovering/Resolving]
  - Syncope [Recovering/Resolving]
  - Hyponatraemia [Recovering/Resolving]
  - Incorrect dose administered [Recovering/Resolving]
